FAERS Safety Report 10748721 (Version 3)
Quarter: 2015Q1

REPORT INFORMATION
  Report Type: Other
  Country: DE (occurrence: DE)
  Receive Date: 20150129
  Receipt Date: 20150324
  Transmission Date: 20150721
  Serious: Yes (Other)
  Sender: FDA-Public Use
  Company Number: DE-SPECTRUM PHARMACEUTICALS, INC.-15-M-DE-00014

PATIENT
  Sex: Female

DRUGS (11)
  1. PEGFILGRASTIM [Concomitant]
     Active Substance: PEGFILGRASTIM
     Indication: NON-HODGKIN^S LYMPHOMA
     Dosage: 6 MG, 1/D
     Route: 058
     Dates: end: 20140917
  2. LEVOTHYROXINE [Concomitant]
     Active Substance: LEVOTHYROXINE
     Indication: THYROIDECTOMY
     Dosage: 125 MG, 1-0-0
     Route: 048
  3. CYCLOPHOSPHAMIDE. [Concomitant]
     Active Substance: CYCLOPHOSPHAMIDE
     Indication: NON-HODGKIN^S LYMPHOMA
     Dosage: 1462.5 MG, 1/D
     Route: 042
     Dates: end: 20140911
  4. COTRIMOXAZOLE [Concomitant]
     Active Substance: SULFAMETHOXAZOLE\TRIMETHOPRIM
     Indication: PROPHYLAXIS
     Dosage: 960 MG, SA A. SO
     Route: 048
     Dates: start: 20140730
  5. DOXORUBICIN [Concomitant]
     Active Substance: DOXORUBICIN
     Indication: NON-HODGKIN^S LYMPHOMA
     Dosage: 97.5 MG, 1/D
     Route: 042
     Dates: end: 20140911
  6. ACYCLOVIR                          /00587301/ [Concomitant]
     Active Substance: ACYCLOVIR
     Indication: INFECTION PROPHYLAXIS
     Dosage: 400 MG, 1-1-1-1
     Route: 048
     Dates: start: 20140730
  7. PREDNISOLONE. [Concomitant]
     Active Substance: PREDNISOLONE
     Indication: NON-HODGKIN^S LYMPHOMA
     Dosage: 500 MG, 1/D
     Route: 048
     Dates: end: 20140915
  8. VINCRISTINE SULFATE LIPOSOME [Suspect]
     Active Substance: VINCRISTINE SULFATE
     Indication: NON-HODGKIN^S LYMPHOMA
     Dosage: 3.9 MG, QD
     Route: 042
     Dates: end: 20140911
  9. PANTOPRAZOLE [Concomitant]
     Active Substance: PANTOPRAZOLE SODIUM
     Indication: GASTROOESOPHAGEAL REFLUX DISEASE
     Dosage: 40 MG, 1-0-0
     Route: 048
     Dates: start: 20140726
  10. RITUXIMAB [Concomitant]
     Active Substance: RITUXIMAB
     Indication: NON-HODGKIN^S LYMPHOMA
     Dosage: 731.3 MG, 1/D
     Route: 042
     Dates: end: 20140910
  11. LEVODOPA W/BENSERAZIDE [Concomitant]
     Active Substance: BENSERAZIDE\LEVODOPA
     Indication: RESTLESS LEGS SYNDROME
     Dosage: 100/25 MG, QD
     Route: 048

REACTIONS (1)
  - Polyneuropathy [Recovering/Resolving]

NARRATIVE: CASE EVENT DATE: 20140924
